FAERS Safety Report 9082249 (Version 3)
Quarter: 2013Q1

REPORT INFORMATION
  Report Type: Spontaneous
  Country: ES (occurrence: ES)
  Receive Date: 20130131
  Receipt Date: 20130221
  Transmission Date: 20140127
  Serious: Yes (Other)
  Sender: FDA-Public Use
  Company Number: ES-AMGEN-ESPSP2013006668

PATIENT
  Age: 42 Year
  Sex: Male

DRUGS (4)
  1. ENBREL [Suspect]
     Indication: ANKYLOSING SPONDYLITIS
     Dosage: 50 MG, WEEKLY
     Dates: start: 200502, end: 201301
  2. NAPROXEN [Concomitant]
     Dosage: 500 MG, 2X/DAY (1-0-1) (INTERMITTENT)
  3. OMEPRAZOLE [Concomitant]
     Dosage: 20 MG, 1X/DAY
  4. BUTAZOLIDIN                        /00009301/ [Concomitant]
     Dosage: UNK, INTERMITTENT

REACTIONS (1)
  - Liposarcoma [Not Recovered/Not Resolved]
